FAERS Safety Report 4730251-8 (Version None)
Quarter: 2005Q3

REPORT INFORMATION
  Report Type: 
  Country: None (occurrence: None)
  Receive Date: 20050801
  Receipt Date: 20050708
  Transmission Date: 20060218
  Serious: Yes (Life-Threatening)
  Sender: FDA-Public Use
  Company Number: JP-ROCHE-410074

PATIENT
  Age: 68 Year
  Sex: Female

DRUGS (9)
  1. PANALDINE [Suspect]
     Indication: THROMBOSIS PROPHYLAXIS
     Dosage: OTHER INDICATIONS: PERCUTANEOUS CORONARY INTERVENTION WITH STENT PLACEMENT AND ANGINA PECTORIS.
     Route: 048
     Dates: start: 20050523, end: 20050621
  2. ASPIRIN [Concomitant]
     Indication: THROMBOSIS PROPHYLAXIS
     Dosage: OTHER INDICATIONS: PERCUTANEOUS CORONARY INTERVENTION AND ANGINA PECTORIS.
     Route: 048
     Dates: start: 20050523
  3. PLETAL [Concomitant]
     Dates: start: 20050621
  4. SIGMART [Concomitant]
     Indication: ANGINA PECTORIS
     Route: 048
     Dates: start: 20050523, end: 20050629
  5. FRANDOL [Concomitant]
     Indication: ANGINA PECTORIS
     Route: 046
     Dates: start: 20050523, end: 20050629
  6. ARTIST [Concomitant]
     Indication: HYPERTENSION
     Route: 048
     Dates: start: 20050523, end: 20050629
  7. DIOVAN [Concomitant]
     Indication: HYPERTENSION
     Route: 048
     Dates: start: 20050523, end: 20050629
  8. MEVALOTIN [Concomitant]
     Indication: HYPERLIPIDAEMIA
     Route: 048
     Dates: start: 20050523, end: 20050629
  9. GASTER D [Concomitant]
     Indication: GASTRITIS
     Route: 048
     Dates: start: 20050523, end: 20050629

REACTIONS (3)
  - AGRANULOCYTOSIS [None]
  - MALAISE [None]
  - PYREXIA [None]
